FAERS Safety Report 16103073 (Version 2)
Quarter: 2020Q1

REPORT INFORMATION
  Report Type: Spontaneous
  Country: ES (occurrence: ES)
  Receive Date: 20190322
  Receipt Date: 20200118
  Transmission Date: 20200409
  Serious: Yes (Hospitalization, Other)
  Sender: FDA-Public Use
  Company Number: ES-AUROBINDO-AUR-APL-2019-014505

PATIENT
  Age: 28 Year
  Sex: Male

DRUGS (19)
  1. DOXORUBICIN [Suspect]
     Active Substance: DOXORUBICIN
     Indication: NON-HODGKIN^S LYMPHOMA
  2. CISPLATIN. [Suspect]
     Active Substance: CISPLATIN
     Indication: NON-HODGKIN^S LYMPHOMA STAGE II
     Dosage: UNK, SECOND-LINE CHEMOTHERAPY
     Route: 065
     Dates: start: 2017, end: 2017
  3. GENOXAL [Suspect]
     Active Substance: CYCLOPHOSPHAMIDE
     Indication: NON-HODGKIN^S LYMPHOMA STAGE II
     Dosage: UNK, CYCLICAL, 1ST LINE CHEMOTHERAPY, CHOP (?5)
     Route: 065
     Dates: start: 201706, end: 2017
  4. GEMCITABINE. [Suspect]
     Active Substance: GEMCITABINE
     Indication: NON-HODGKIN^S LYMPHOMA STAGE II
     Dosage: UNK, THIRD-LINE CHEMOTHERPY
     Route: 065
  5. GENOXAL [Suspect]
     Active Substance: CYCLOPHOSPHAMIDE
     Indication: NON-HODGKIN^S LYMPHOMA
  6. ETOPOSIDE. [Suspect]
     Active Substance: ETOPOSIDE
     Indication: NON-HODGKIN^S LYMPHOMA STAGE II
     Dosage: UNK, SECOND-LINE CHEMOTHERAPY
     Route: 065
  7. BRENTUXIMAB VEDOTIN [Concomitant]
     Active Substance: BRENTUXIMAB VEDOTIN
     Dosage: 150 MILLIGRAM, INFUSION
     Route: 065
  8. DOXORUBICIN [Suspect]
     Active Substance: DOXORUBICIN
     Indication: NON-HODGKIN^S LYMPHOMA STAGE II
     Dosage: UNK CYCLICAL, 1ST LINE CHEMOTHERAPY, CHOP (?5)
     Route: 065
     Dates: start: 201706
  9. PREDNISONE. [Suspect]
     Active Substance: PREDNISONE
     Indication: NON-HODGKIN^S LYMPHOMA
  10. MONTELUKAST [Concomitant]
     Active Substance: MONTELUKAST SODIUM
     Indication: PREMEDICATION
     Dosage: UNK
     Route: 065
  11. BENDAMUSTINE HYDROCHLORIDE. [Suspect]
     Active Substance: BENDAMUSTINE HYDROCHLORIDE
     Indication: NON-HODGKIN^S LYMPHOMA STAGE II
     Dosage: UNK, DAYS 1, 2
     Route: 065
     Dates: start: 20180226
  12. OXALIPLATIN. [Suspect]
     Active Substance: OXALIPLATIN
     Indication: NON-HODGKIN^S LYMPHOMA STAGE II
     Dosage: UNK
     Route: 065
  13. BENDAMUSTINE HYDROCHLORIDE. [Suspect]
     Active Substance: BENDAMUSTINE HYDROCHLORIDE
     Dosage: 150 MILLIGRAM
     Route: 065
  14. METHYLPREDNISOLONE. [Suspect]
     Active Substance: METHYLPREDNISOLONE
     Indication: NON-HODGKIN^S LYMPHOMA STAGE II
     Dosage: UNK, SECOND-LINE CHEMOTHERAPY
     Route: 065
     Dates: start: 2017, end: 2017
  15. PREDNISONE. [Suspect]
     Active Substance: PREDNISONE
     Indication: NON-HODGKIN^S LYMPHOMA STAGE II
     Dosage: UNK, CYCLICAL,FIRST LINE CHEMOTHERAPY, (CHOP (?5)
     Route: 065
     Dates: start: 201706, end: 2017
  16. VINCRISTINE SULFATE. [Suspect]
     Active Substance: VINCRISTINE SULFATE
     Indication: NON-HODGKIN^S LYMPHOMA
  17. BRENTUXIMAB VEDOTIN [Concomitant]
     Active Substance: BRENTUXIMAB VEDOTIN
     Indication: NON-HODGKIN^S LYMPHOMA STAGE II
     Dosage: UNK
     Route: 065
     Dates: start: 20180226
  18. CYTARABINE. [Suspect]
     Active Substance: CYTARABINE
     Indication: NON-HODGKIN^S LYMPHOMA STAGE II
     Dosage: UNK, SECOND-LINE CHEMOTHERAPY
     Route: 065
  19. VINCRISTINE SULFATE. [Suspect]
     Active Substance: VINCRISTINE SULFATE
     Indication: NON-HODGKIN^S LYMPHOMA STAGE II
     Dosage: UNK UNK, CYCLICAL,FIRST LINE CHEMOTHERAPY, (CHOP (?5)
     Route: 065
     Dates: start: 201706, end: 2017

REACTIONS (11)
  - Non-Hodgkin^s lymphoma [Unknown]
  - Rash maculo-papular [Recovered/Resolved]
  - Angioedema [Recovered/Resolved]
  - Pruritus [Recovered/Resolved]
  - Temperature regulation disorder [Recovered/Resolved]
  - Drug ineffective [Unknown]
  - Type IV hypersensitivity reaction [Recovered/Resolved]
  - Dyspnoea [Recovered/Resolved]
  - Rash [Recovered/Resolved]
  - Therapy non-responder [Unknown]
  - Pyrexia [Recovered/Resolved]

NARRATIVE: CASE EVENT DATE: 2017
